FAERS Safety Report 9117097 (Version 1)
Quarter: 2013Q1

REPORT INFORMATION
  Report Type: Spontaneous
  Country: US (occurrence: US)
  Receive Date: 20130225
  Receipt Date: 20130225
  Transmission Date: 20140127
  Serious: Yes (Hospitalization)
  Sender: FDA-Public Use
  Company Number: US-BAYER-2013-021556

PATIENT
  Age: 20 Year
  Sex: Female

DRUGS (3)
  1. YAZ [Suspect]
  2. GIANVI [Suspect]
  3. ALLEGRA-D [Concomitant]
     Indication: HYPERSENSITIVITY
     Dosage: UNK
     Route: 048
     Dates: start: 20110824

REACTIONS (2)
  - Pulmonary embolism [None]
  - Deep vein thrombosis [None]
